FAERS Safety Report 5384584-5 (Version None)
Quarter: 2007Q3

REPORT INFORMATION
  Report Type: 
  Country: None (occurrence: None)
  Receive Date: 20070711
  Receipt Date: 20070702
  Transmission Date: 20080115
  Serious: Yes (Death, Hospitalization)
  Sender: FDA-Public Use
  Company Number: DE-PFIZER INC-2007009150

PATIENT
  Sex: Female
  Weight: 66 kg

DRUGS (8)
  1. INSPRA [Suspect]
     Indication: MYOCARDIAL INFARCTION
     Route: 048
     Dates: start: 20070112, end: 20070122
  2. INSPRA [Suspect]
     Indication: CARDIAC FAILURE
  3. ASPIRIN [Concomitant]
  4. BISOPROLOL [Concomitant]
     Dates: start: 20070112
  5. LASIX [Concomitant]
     Dates: start: 20070112
  6. LEVOTHYROXINE SODIUM [Concomitant]
  7. GODAMED [Concomitant]
     Dates: start: 20070112
  8. ACTRAPHANE HM [Concomitant]
     Route: 058

REACTIONS (7)
  - ACUTE HEPATIC FAILURE [None]
  - COAGULOPATHY [None]
  - GENERAL PHYSICAL HEALTH DETERIORATION [None]
  - HAEMORRHAGE [None]
  - NAUSEA [None]
  - RENAL FAILURE ACUTE [None]
  - THROMBOCYTOPENIA [None]
